FAERS Safety Report 23109607 (Version 2)
Quarter: 2023Q4

REPORT INFORMATION
  Report Type: Spontaneous
  Country: US (occurrence: US)
  Receive Date: 20231026
  Receipt Date: 20231222
  Transmission Date: 20240109
  Serious: Yes (Hospitalization, Other)
  Sender: FDA-Public Use
  Company Number: US-Merz Pharmaceuticals GmbH-23-03299

PATIENT
  Age: 56 Year
  Sex: Female
  Weight: 53.9 kg

DRUGS (9)
  1. XEOMIN [Suspect]
     Active Substance: INCOBOTULINUMTOXINA
     Indication: Product used for unknown indication
     Route: 030
     Dates: start: 20230815, end: 20230815
  2. XEOMIN [Suspect]
     Active Substance: INCOBOTULINUMTOXINA
  3. XEOMIN [Suspect]
     Active Substance: INCOBOTULINUMTOXINA
  4. XEOMIN [Suspect]
     Active Substance: INCOBOTULINUMTOXINA
  5. XEOMIN [Suspect]
     Active Substance: INCOBOTULINUMTOXINA
  6. XEOMIN [Suspect]
     Active Substance: INCOBOTULINUMTOXINA
  7. XEOMIN [Suspect]
     Active Substance: INCOBOTULINUMTOXINA
  8. XEOMIN [Suspect]
     Active Substance: INCOBOTULINUMTOXINA
  9. XEOMIN [Suspect]
     Active Substance: INCOBOTULINUMTOXINA
     Route: 030

REACTIONS (3)
  - Cellulitis [Not Recovered/Not Resolved]
  - Ocular hyperaemia [Not Recovered/Not Resolved]
  - Product preparation issue [Unknown]

NARRATIVE: CASE EVENT DATE: 20230101
